FAERS Safety Report 8520204-6 (Version None)
Quarter: 2012Q3

REPORT INFORMATION
  Report Type: 
  Country: None (occurrence: None)
  Receive Date: 20120719
  Receipt Date: 20120710
  Transmission Date: 20120928
  Serious: Yes (Other)
  Sender: FDA-Public Use
  Company Number: GB-JNJFOC-20120705416

PATIENT
  Sex: Female

DRUGS (2)
  1. SIMPONI [Suspect]
     Indication: PRODUCT USED FOR UNKNOWN INDICATION
     Route: 058
     Dates: start: 20120613
  2. SIMPONI [Suspect]
     Route: 058

REACTIONS (6)
  - GASTROOESOPHAGEAL REFLUX DISEASE [None]
  - MIDDLE INSOMNIA [None]
  - OEDEMA PERIPHERAL [None]
  - DEPRESSION [None]
  - ANXIETY [None]
  - TREMOR [None]
